FAERS Safety Report 10636980 (Version 1)
Quarter: 2014Q4

REPORT INFORMATION
  Report Type: Report from Study
  Country: US (occurrence: US)
  Receive Date: 20141208
  Receipt Date: 20141208
  Transmission Date: 20150529
  Serious: Yes (Hospitalization)
  Sender: FDA-Public Use
  Company Number: US-ROCHE-1502143

PATIENT
  Age: 43 Year
  Sex: Female
  Weight: 99.3 kg

DRUGS (4)
  1. TRASTUZUMAB [Suspect]
     Active Substance: TRASTUZUMAB
     Indication: BREAST CANCER
     Dosage: TOTAL ADMINISTERD DOSE: 794 MG?OVER 90 MIN ON DAY 1
     Route: 042
     Dates: start: 20140917
  2. DOCETAXEL. [Suspect]
     Active Substance: DOCETAXEL
     Indication: BREAST CANCER
     Dosage: TOTAL ADMINISTERD DOSE:  157 MG?OVER 60 MIN ON DAY 1 Q3 WEEKS?CYCLE 1
     Route: 042
     Dates: start: 20140917
  3. PERTUZUMAB [Suspect]
     Active Substance: PERTUZUMAB
     Indication: BREAST CANCER
     Dosage: TOTAL ADMINISTERD DOSE: 840 MG?OVER 60 MIN ON DAY 1?CYCLE 1
     Route: 042
     Dates: start: 20140917
  4. CARBOPLATIN. [Suspect]
     Active Substance: CARBOPLATIN
     Indication: BREAST CANCER
     Dosage: TOTAL ADMINISTERD DOSE: 900 MG?AUC=6 MG/ML/MIN IV OVER 30-60 MIN ON DAY 1 Q3 WEEKS
     Route: 042
     Dates: start: 20140917

REACTIONS (5)
  - Diarrhoea [Recovering/Resolving]
  - Vomiting [Recovering/Resolving]
  - Colitis [Recovering/Resolving]
  - Febrile neutropenia [Recovering/Resolving]
  - Nausea [Recovering/Resolving]

NARRATIVE: CASE EVENT DATE: 20140923
